FAERS Safety Report 5909558-4 (Version None)
Quarter: 2008Q4

REPORT INFORMATION
  Report Type: 
  Country: None (occurrence: None)
  Receive Date: 20081002
  Receipt Date: 20080918
  Transmission Date: 20090506
  Serious: Yes (Life-Threatening)
  Sender: FDA-Public Use
  Company Number: 2008S1016153

PATIENT
  Age: 48 Year
  Sex: 0

DRUGS (3)
  1. PHENYTEK [Suspect]
     Indication: CONVULSION
     Dosage: 300 MG; DAILY; ORAL; 600 MG;DAILY;ORAL
     Route: 048
     Dates: end: 20080301
  2. PHENYTEK [Suspect]
     Indication: CONVULSION
     Dosage: 300 MG; DAILY; ORAL; 600 MG;DAILY;ORAL
     Route: 048
     Dates: start: 20080301, end: 20080601
  3. MULTI-VITAMINS [Concomitant]

REACTIONS (12)
  - AMNESIA [None]
  - BONE PAIN [None]
  - DIZZINESS [None]
  - DRUG DISPENSING ERROR [None]
  - EYE PAIN [None]
  - FATIGUE [None]
  - GAIT DISTURBANCE [None]
  - HEADACHE [None]
  - MYALGIA [None]
  - OVERDOSE [None]
  - TINNITUS [None]
  - VISION BLURRED [None]
